FAERS Safety Report 9315062 (Version 1)
Quarter: 2013Q2

REPORT INFORMATION
  Report Type: Spontaneous
  Country: US (occurrence: US)
  Receive Date: 20130529
  Receipt Date: 20130529
  Transmission Date: 20140414
  Serious: No
  Sender: FDA-Public Use
  Company Number: US-BAYER-2013-062243

PATIENT
  Sex: Male

DRUGS (2)
  1. STIVARGA [Suspect]
     Dosage: UNK
  2. STIVARGA [Suspect]
     Dosage: 120 MG, QD
     Route: 048
     Dates: start: 20130502

REACTIONS (1)
  - Palmar-plantar erythrodysaesthesia syndrome [None]
